FAERS Safety Report 5505574-5 (Version None)
Quarter: 2007Q4

REPORT INFORMATION
  Report Type: 
  Country: None (occurrence: None)
  Receive Date: 20071102
  Receipt Date: 20071029
  Transmission Date: 20080405
  Serious: Yes (Other)
  Sender: FDA-Public Use
  Company Number: FR-BRISTOL-MYERS SQUIBB COMPANY-13966577

PATIENT
  Age: 53 Year
  Sex: Female

DRUGS (1)
  1. SPRYCEL [Suspect]
     Indication: CHRONIC MYELOID LEUKAEMIA

REACTIONS (5)
  - ARTHRALGIA [None]
  - BRONCHOSPASM [None]
  - LUNG INFILTRATION [None]
  - MYALGIA [None]
  - PARAESTHESIA [None]
